FAERS Safety Report 6766627-7 (Version None)
Quarter: 2010Q2

REPORT INFORMATION
  Report Type: 
  Country: None (occurrence: None)
  Receive Date: 20100609
  Receipt Date: 20100525
  Transmission Date: 20101027
  Serious: Yes (Other)
  Sender: FDA-Public Use
  Company Number: 2010050064

PATIENT
  Age: 50 Year
  Sex: Female

DRUGS (7)
  1. CARISOPRODOL [Suspect]
     Dosage: 1750 MCG (350 MCG, 5 IN 1D)
  2. DIAZEPAM [Suspect]
     Dosage: 100 MG, DAILY
  3. FLUNITRAZEPAM (FLUNITRAZEPAM) [Suspect]
     Dosage: 2 MG, DAILY IN THE PM
  4. OXAZEMPAM (OXAZEPAM) [Suspect]
  5. NITRAZEPAM [Suspect]
     Dosage: 100MG, DAILY
  6. ALIMEMAZIN [Concomitant]
  7. 1SI GENERATION ANTIPSYCHOTICS [Concomitant]

REACTIONS (8)
  - AGORAPHOBIA [None]
  - ANXIETY [None]
  - DRUG ABUSE [None]
  - DYSPHONIA [None]
  - NERVOUSNESS [None]
  - PRURITUS [None]
  - SOCIAL PHOBIA [None]
  - SUICIDE ATTEMPT [None]
